FAERS Safety Report 7826655-7 (Version None)
Quarter: 2011Q4

REPORT INFORMATION
  Report Type: 
  Country: None (occurrence: None)
  Receive Date: 20111020
  Receipt Date: 20111011
  Transmission Date: 20120403
  Serious: Yes (Disabling)
  Sender: FDA-Public Use
  Company Number: TW-JNJFOC-20111005109

PATIENT
  Age: 27 Year
  Sex: Male
  Weight: 101 kg

DRUGS (1)
  1. INVEGA [Suspect]
     Indication: SCHIZOPHRENIA
     Route: 048

REACTIONS (3)
  - GLAUCOMA [None]
  - OPTIC ATROPHY [None]
  - VISION BLURRED [None]
